FAERS Safety Report 7897817-8 (Version None)
Quarter: 2011Q4

REPORT INFORMATION
  Report Type: 
  Country: None (occurrence: None)
  Receive Date: 20111107
  Receipt Date: 20111019
  Transmission Date: 20120403
  Serious: Yes (Death, Hospitalization, Other)
  Sender: FDA-Public Use
  Company Number: GB-ROCHE-GNE321317

PATIENT
  Sex: Female

DRUGS (1)
  1. LUCENTIS [Suspect]
     Indication: PRODUCT USED FOR UNKNOWN INDICATION
     Route: 050

REACTIONS (6)
  - LUNG ADENOCARCINOMA [None]
  - LUNG CANCER METASTATIC [None]
  - ADENOCARCINOMA [None]
  - NON-HODGKIN'S LYMPHOMA [None]
  - NON-SMALL CELL LUNG CANCER [None]
  - HEPATIC NEOPLASM MALIGNANT [None]
